FAERS Safety Report 6335846-6 (Version None)
Quarter: 2009Q3

REPORT INFORMATION
  Report Type: 
  Country: None (occurrence: None)
  Receive Date: 20090828
  Receipt Date: 20090819
  Transmission Date: 20100115
  Serious: Yes (Hospitalization)
  Sender: FDA-Public Use
  Company Number: GXKR2009TN09405

PATIENT
  Age: 40 Year
  Sex: Male

DRUGS (4)
  1. PREDNISONE [Suspect]
     Indication: IMMUNOSUPPRESSION
  2. MYCOPHENOLATE MOFETIL [Suspect]
     Indication: IMMUNOSUPPRESSION
  3. ANTI-THYMOCYTE GLOBULIN NOS [Suspect]
     Indication: IMMUNOSUPPRESSION
  4. TACROLIMUS [Suspect]
     Indication: IMMUNOSUPPRESSION
     Dosage: MAINTENANCE,

REACTIONS (17)
  - AMYOTROPHY [None]
  - BLOOD ALBUMIN DECREASED [None]
  - COMPLICATIONS OF TRANSPLANTED KIDNEY [None]
  - COUGH [None]
  - GENERAL PHYSICAL CONDITION ABNORMAL [None]
  - GLYCOSYLATED HAEMOGLOBIN INCREASED [None]
  - HEMIPARESIS [None]
  - IMMUNOGLOBULINS DECREASED [None]
  - KAPOSI'S SARCOMA [None]
  - LOWER EXTREMITY MASS [None]
  - LUNG NEOPLASM [None]
  - NOCARDIOSIS [None]
  - NODULE [None]
  - PYREXIA [None]
  - RESPIRATORY DISTRESS [None]
  - SKIN NODULE [None]
  - STATUS EPILEPTICUS [None]
